FAERS Safety Report 5252587-7 (Version None)
Quarter: 2007Q1

REPORT INFORMATION
  Report Type: 
  Country: None (occurrence: None)
  Receive Date: 20070301
  Receipt Date: 20070222
  Transmission Date: 20070707
  Serious: No
  Sender: FDA-Public Use
  Company Number: JP-BAYER-200611310BYL

PATIENT
  Age: 61 Year
  Sex: Female
  Weight: 44 kg

DRUGS (2)
  1. AVELOX [Suspect]
     Indication: BRONCHIECTASIS
     Dosage: TOTAL DAILY DOSE: 200 MG  UNIT DOSE: 400 MG
     Route: 048
     Dates: start: 20061124, end: 20061203
  2. CLARITHROMYCIN [Concomitant]
     Indication: RESPIRATORY TRACT INFECTION
     Dosage: TOTAL DAILY DOSE: 400 MG  UNIT DOSE: 200 MG
     Route: 048
     Dates: start: 19980301

REACTIONS (1)
  - SOMNOLENCE [None]
